FAERS Safety Report 24600957 (Version 1)
Quarter: 2024Q4

REPORT INFORMATION
  Report Type: Spontaneous
  Country: US (occurrence: US)
  Receive Date: 20241110
  Receipt Date: 20241110
  Transmission Date: 20250114
  Serious: No
  Sender: BEIGENE
  Company Number: 2024ST000668

PATIENT

DRUGS (8)
  1. BRUKINSA [Suspect]
     Active Substance: ZANUBRUTINIB
     Indication: Product used for unknown indication
  2. ORSERDU [Suspect]
     Active Substance: ELACESTRANT
     Indication: Product used for unknown indication
  3. CALCIUM\VITAMIN D [Concomitant]
     Active Substance: CALCIUM\VITAMIN D
  4. AMLODIPINE [Concomitant]
     Active Substance: AMLODIPINE BESYLATE
  5. ATORVASTATIN [Concomitant]
     Active Substance: ATORVASTATIN
  6. GABAPENTIN [Concomitant]
     Active Substance: GABAPENTIN
  7. ZOMETA [Concomitant]
     Active Substance: ZOLEDRONIC ACID
  8. ATENOLOL [Concomitant]
     Active Substance: ATENOLOL

REACTIONS (1)
  - Myalgia [Unknown]
